FAERS Safety Report 7598550-2 (Version None)
Quarter: 2011Q3

REPORT INFORMATION
  Report Type: 
  Country: None (occurrence: None)
  Receive Date: 20110708
  Receipt Date: 20110629
  Transmission Date: 20111222
  Serious: Yes (Hospitalization)
  Sender: FDA-Public Use
  Company Number: GB-ELI_LILLY_AND_COMPANY-GB201106008415

PATIENT
  Age: 50 Year
  Sex: Male

DRUGS (7)
  1. VICTOZA [Concomitant]
     Dosage: UNK
     Dates: start: 20110603, end: 20110610
  2. PRAVASTATIN SODIUM [Concomitant]
  3. BYETTA [Suspect]
     Dosage: 5 UG, BID
     Dates: start: 20110513
  4. METFORMIN HCL [Concomitant]
  5. ASPIRIN [Concomitant]
  6. CIALIS [Concomitant]
  7. BYETTA [Suspect]
     Dosage: 10 UG, BID
     Dates: end: 20110603

REACTIONS (3)
  - EROSIVE DUODENITIS [None]
  - GASTRITIS EROSIVE [None]
  - BLOOD AMYLASE INCREASED [None]
